FAERS Safety Report 14062522 (Version 1)
Quarter: 2017Q4

REPORT INFORMATION
  Report Type: Spontaneous
  Country: TH (occurrence: TH)
  Receive Date: 20171009
  Receipt Date: 20171009
  Transmission Date: 20180321
  Serious: Yes (Other)
  Sender: FDA-Public Use
  Company Number: TH-ASTELLAS-2017US039738

PATIENT
  Age: 9 Month
  Sex: Female

DRUGS (2)
  1. TACROLIMUS. [Suspect]
     Active Substance: TACROLIMUS
     Indication: LIVER TRANSPLANT
     Dosage: UNK UNK, UNKNOWN FREQ.
     Route: 065
  2. PREDNISOLONE. [Suspect]
     Active Substance: PREDNISOLONE
     Indication: LIVER TRANSPLANT
     Dosage: UNK, UNKNOWN FREQ.
     Route: 065

REACTIONS (8)
  - Respiratory failure [Unknown]
  - Acinetobacter infection [Unknown]
  - Passenger lymphocyte syndrome [Recovering/Resolving]
  - Liver transplant rejection [Unknown]
  - Bacterial sepsis [Unknown]
  - Drug level below therapeutic [Unknown]
  - Packed red blood cell transfusion [Unknown]
  - Endotracheal intubation [Unknown]
